FAERS Safety Report 8923479 (Version 1)
Quarter: 2012Q4

REPORT INFORMATION
  Report Type: Spontaneous
  Country: US (occurrence: None)
  Receive Date: 20121115
  Receipt Date: 20121115
  Transmission Date: 20130627
  Serious: No
  Sender: FDA-Public Use
  Company Number: None

PATIENT
  Age: 60 Year
  Sex: Male

DRUGS (1)
  1. AUGMENTIN [Suspect]
     Indication: INFECTION
     Dates: start: 20110914, end: 20110928

REACTIONS (1)
  - Drug-induced liver injury [None]
